FAERS Safety Report 17351089 (Version 1)
Quarter: 2020Q1

REPORT INFORMATION
  Report Type: Spontaneous
  Country: US (occurrence: US)
  Receive Date: 20200130
  Receipt Date: 20200130
  Transmission Date: 20200409
  Serious: No
  Sender: FDA-Public Use
  Company Number: US-TEVA-2020-US-1175370

PATIENT
  Sex: Female

DRUGS (3)
  1. INGREZZA [Concomitant]
     Active Substance: VALBENAZINE
  2. AUSTEDO [Suspect]
     Active Substance: DEUTETRABENAZINE
     Indication: TARDIVE DYSKINESIA
     Dosage: 12 MILLIGRAM DAILY; UNKNOWN START DATE;  DOSE OF 6 MG TWICE DAILY IN THE MORNING AND EVENING
     Route: 048
  3. ARIPIPRAZOLE. [Concomitant]
     Active Substance: ARIPIPRAZOLE

REACTIONS (2)
  - Impaired work ability [Unknown]
  - Insomnia [Unknown]
